FAERS Safety Report 5815647-5 (Version None)
Quarter: 2008Q3

REPORT INFORMATION
  Report Type: 
  Country: None (occurrence: None)
  Receive Date: 20080716
  Receipt Date: 20080711
  Transmission Date: 20090109
  Serious: Yes (Hospitalization)
  Sender: FDA-Public Use
  Company Number: 163-21880-08070574

PATIENT
  Age: 76 Year
  Sex: Female
  Weight: 66.3 kg

DRUGS (3)
  1. REVLIMID [Suspect]
     Indication: MULTIPLE MYELOMA
     Dosage: 25 MG, D1-28 Q 35D, ORAL
     Route: 048
     Dates: start: 20050810, end: 20060131
  2. DEXAMETHASONE TAB [Suspect]
     Indication: MULTIPLE MYELOMA
     Dosage: 40 MG, D1-4, 9-12, 17-20, Q 35D, ORAL
     Route: 048
     Dates: start: 20050810, end: 20060129
  3. LOVENOX [Concomitant]

REACTIONS (2)
  - HAEMOGLOBIN DECREASED [None]
  - THROMBOTIC THROMBOCYTOPENIC PURPURA [None]
